FAERS Safety Report 5871311-8 (Version None)
Quarter: 2008Q3

REPORT INFORMATION
  Report Type: 
  Country: None (occurrence: None)
  Receive Date: 20080905
  Receipt Date: 20080903
  Transmission Date: 20090109
  Serious: Yes (Life-Threatening, Hospitalization, Other)
  Sender: FDA-Public Use
  Company Number: TW-BRISTOL-MYERS SQUIBB COMPANY-13507207

PATIENT
  Age: 81 Year
  Sex: Male
  Weight: 63 kg

DRUGS (17)
  1. CISPLATIN [Suspect]
     Indication: NON-SMALL CELL LUNG CANCER
     Dosage: THERAPY STARTED ON 14JUN06. TOTAL DAILY DOSE 124.5 MG
     Route: 042
     Dates: start: 20060809, end: 20060809
  2. PF-3512676 [Suspect]
     Indication: NON-SMALL CELL LUNG CANCER
     Route: 058
     Dates: start: 20060721, end: 20060824
  3. GEMCITABINE [Suspect]
     Indication: NON-SMALL CELL LUNG CANCER
     Dosage: THERAPY STARTED ON 14JUN06.TOTAL DOSE 2075 MG.
     Route: 042
     Dates: start: 20060816, end: 20060816
  4. ACETAMINOPHEN [Concomitant]
     Route: 048
     Dates: start: 20060808, end: 20060816
  5. FUROSEMIDE [Concomitant]
     Route: 042
     Dates: start: 20060809, end: 20060905
  6. DEXAMETHASONE TAB [Concomitant]
     Route: 042
     Dates: start: 20060809, end: 20060816
  7. GRANISETRON HCL [Concomitant]
     Route: 042
     Dates: start: 20060809, end: 20060809
  8. PROCHLORPERAZINE [Concomitant]
     Route: 042
     Dates: start: 20060809, end: 20060809
  9. DOXAZOSIN MESYLATE [Concomitant]
     Route: 048
     Dates: start: 20060704, end: 20060830
  10. METOCLOPRAMIDE [Concomitant]
     Dosage: ALSO TAKEN ORALLY FROM 16AUG06-30AUG06
     Route: 042
     Dates: start: 20060802, end: 20060816
  11. METOCLOPRAMIDE [Concomitant]
     Route: 048
     Dates: start: 20060816, end: 20060830
  12. MEGESTROL ACETATE [Concomitant]
     Route: 048
     Dates: start: 20060613, end: 20060830
  13. BIPERIDEN HYDROCHLORIDE TAB [Concomitant]
     Route: 048
     Dates: start: 20060816, end: 20060816
  14. LORAZEPAM [Concomitant]
     Route: 048
     Dates: start: 20060816, end: 20060916
  15. CHLORPHENIRAMINE MALEATE [Concomitant]
     Route: 042
     Dates: start: 20060823, end: 20060906
  16. GOWELL [Concomitant]
     Dates: start: 20060620, end: 20060830
  17. AMINO ACIDS + VITAMINS + MINERALS [Concomitant]
     Route: 048
     Dates: start: 20060823, end: 20060913

REACTIONS (12)
  - ABDOMINAL DISTENSION [None]
  - ANAEMIA [None]
  - HYPERGLYCAEMIA [None]
  - HYPONATRAEMIA [None]
  - METABOLIC ACIDOSIS [None]
  - NEUTROPENIA [None]
  - PULMONARY OEDEMA [None]
  - RENAL FAILURE [None]
  - RESPIRATORY FAILURE [None]
  - SEPTIC SHOCK [None]
  - THROMBOCYTOPENIA [None]
  - URINARY RETENTION [None]
